FAERS Safety Report 14660614 (Version 1)
Quarter: 2018Q1

REPORT INFORMATION
  Report Type: Spontaneous
  Country: PH (occurrence: PH)
  Receive Date: 20180320
  Receipt Date: 20180320
  Transmission Date: 20180509
  Serious: Yes (Hospitalization, Other)
  Sender: FDA-Public Use
  Company Number: PH-PFIZER INC-2018112552

PATIENT
  Sex: Male

DRUGS (2)
  1. MUCOSTA [Suspect]
     Active Substance: REBAMIPIDE
     Dosage: 1 DF (TABLET), 3X/DAY
     Dates: start: 20171212
  2. FLAGYL [Suspect]
     Active Substance: METRONIDAZOLE\METRONIDAZOLE HYDROCHLORIDE
     Indication: AMOEBIASIS
     Dosage: UNK, 3X/DAY
     Dates: start: 20171212

REACTIONS (2)
  - Dyspnoea [Unknown]
  - Dizziness [Not Recovered/Not Resolved]

NARRATIVE: CASE EVENT DATE: 20171215
